FAERS Safety Report 4358863-4 (Version None)
Quarter: 2004Q2

REPORT INFORMATION
  Report Type: 
  Country: None (occurrence: None)
  Receive Date: 20040512
  Receipt Date: 20040504
  Transmission Date: 20050107
  Serious: Yes (Hospitalization)
  Sender: FDA-Public Use
  Company Number: 200318711BE

PATIENT
  Age: 72 Year
  Sex: Male

DRUGS (5)
  1. MEDROL [Suspect]
     Indication: IMMUNOSUPPRESSION
     Dates: start: 20021006
  2. SIMULECT [Suspect]
     Indication: IMMUNOSUPPRESSION
     Dosage: SEE IMAGE
     Dates: start: 20021004
  3. SIMULECT [Suspect]
     Indication: IMMUNOSUPPRESSION
     Dosage: SEE IMAGE
     Dates: start: 20021009
  4. BMS224818() [Suspect]
     Indication: IMMUNOSUPPRESSION
     Dosage: 8 ML, QD, IV
     Route: 042
     Dates: start: 20021004
  5. CELLCEPT [Suspect]
     Indication: IMMUNOSUPPRESSION
     Dates: start: 20021004

REACTIONS (1)
  - KIDNEY TRANSPLANT REJECTION [None]
